FAERS Safety Report 8913737 (Version 2)
Quarter: 2012Q4

REPORT INFORMATION
  Report Type: 
  Country: FR (occurrence: FR)
  Receive Date: 20121119
  Receipt Date: 20121119
  Transmission Date: 20130627
  Serious: Yes (Death)
  Sender: FDA-Public Use
  Company Number: FR-JNJFOC-20121108080

PATIENT

DRUGS (1)
  1. CLADRIBINE [Suspect]
     Indication: INTESTINAL T-CELL LYMPHOMA
     Dosage: from day 1 to 4, repeated every 6 months when necessary
     Route: 065

REACTIONS (1)
  - Enteropathy-associated T-cell lymphoma [Fatal]
